FAERS Safety Report 9976068 (Version 14)
Quarter: 2016Q2

REPORT INFORMATION
  Report Type: Spontaneous
  Country: US (occurrence: US)
  Receive Date: 20140306
  Receipt Date: 20160413
  Transmission Date: 20160815
  Serious: Yes (Other)
  Sender: FDA-Public Use
  Company Number: US-ASTRAZENECA-2013SE69849

PATIENT
  Age: 80 Year
  Sex: Female
  Weight: 88.5 kg

DRUGS (81)
  1. CRESTOR [Suspect]
     Active Substance: ROSUVASTATIN CALCIUM
     Indication: LOW DENSITY LIPOPROTEIN INCREASED
     Dosage: 5 MG FOUR TIMES A WEEK
     Route: 048
     Dates: start: 201311
  2. CRESTOR [Suspect]
     Active Substance: ROSUVASTATIN CALCIUM
     Indication: LOW DENSITY LIPOPROTEIN INCREASED
     Dosage: 5 MG FOUR TIMES A WEEK
     Route: 048
     Dates: start: 201410
  3. TOPROL XL [Suspect]
     Active Substance: METOPROLOL SUCCINATE
     Indication: HYPERTROPHIC CARDIOMYOPATHY
     Route: 048
     Dates: start: 20130823
  4. TOPROL XL [Suspect]
     Active Substance: METOPROLOL SUCCINATE
     Indication: CARDIAC DISORDER
     Route: 048
     Dates: start: 20130823
  5. VERAPAMIL [Concomitant]
     Active Substance: VERAPAMIL HYDROCHLORIDE
     Indication: HEART RATE
     Route: 048
     Dates: start: 2010
  6. FUROSEMIDE. [Concomitant]
     Active Substance: FUROSEMIDE
     Indication: OEDEMA PERIPHERAL
     Dosage: DAILY AS NEEDED
     Route: 048
  7. ADVIL [Concomitant]
     Active Substance: IBUPROFEN
     Indication: TOOTH DISORDER
     Route: 048
     Dates: start: 2015
  8. CRESTOR [Suspect]
     Active Substance: ROSUVASTATIN CALCIUM
     Indication: BLOOD CHOLESTEROL ABNORMAL
     Route: 048
  9. TOPROL XL [Suspect]
     Active Substance: METOPROLOL SUCCINATE
     Indication: CARDIAC DISORDER
     Route: 048
  10. TOPROL XL [Suspect]
     Active Substance: METOPROLOL SUCCINATE
     Indication: CARDIAC FAILURE
     Route: 048
  11. TOPROL XL [Suspect]
     Active Substance: METOPROLOL SUCCINATE
     Indication: BLOOD PRESSURE SYSTOLIC ABNORMAL
     Route: 048
  12. TOPROL XL [Suspect]
     Active Substance: METOPROLOL SUCCINATE
     Indication: HEART RATE ABNORMAL
     Route: 048
     Dates: start: 201501, end: 201506
  13. TOPROL XL [Suspect]
     Active Substance: METOPROLOL SUCCINATE
     Indication: CARDIAC DISORDER
     Route: 048
     Dates: start: 201501, end: 201506
  14. FUROSEMIDE. [Concomitant]
     Active Substance: FUROSEMIDE
     Indication: FLUID RETENTION
     Dosage: 20 MG , ONE AND ONE HALF TABLET, 3 DAYS PER WEEK
     Route: 048
  15. FUROSEMIDE. [Concomitant]
     Active Substance: FUROSEMIDE
     Indication: DIURETIC THERAPY
     Route: 048
     Dates: start: 2010
  16. VITAMIN D [Concomitant]
     Active Substance: CHOLECALCIFEROL
     Indication: VITAMIN D DEFICIENCY
  17. VITAMIN D [Concomitant]
     Active Substance: CHOLECALCIFEROL
     Indication: VITAMIN D DEFICIENCY
     Route: 048
     Dates: start: 2014
  18. TOPROL XL [Suspect]
     Active Substance: METOPROLOL SUCCINATE
     Indication: AORTIC STENOSIS
     Route: 048
     Dates: start: 20130823
  19. TOPROL XL [Suspect]
     Active Substance: METOPROLOL SUCCINATE
     Indication: HYPERTROPHIC CARDIOMYOPATHY
     Route: 048
  20. TOPROL XL [Suspect]
     Active Substance: METOPROLOL SUCCINATE
     Indication: BLOOD PRESSURE SYSTOLIC ABNORMAL
     Route: 048
  21. TOPROL XL [Suspect]
     Active Substance: METOPROLOL SUCCINATE
     Indication: AORTIC STENOSIS
     Route: 048
     Dates: start: 201501, end: 201506
  22. TOPROL XL [Suspect]
     Active Substance: METOPROLOL SUCCINATE
     Indication: CARDIAC FAILURE
     Route: 048
     Dates: start: 201507
  23. VERAPAMIL [Concomitant]
     Active Substance: VERAPAMIL HYDROCHLORIDE
     Indication: BLOOD PRESSURE MEASUREMENT
     Route: 048
     Dates: start: 2010
  24. FUROSEMIDE. [Concomitant]
     Active Substance: FUROSEMIDE
     Indication: FLUID RETENTION
     Route: 048
     Dates: start: 2010
  25. ASPIRIN. [Concomitant]
     Active Substance: ASPIRIN
     Indication: ANTICOAGULANT THERAPY
     Dosage: 160 MG, DAILY
     Route: 048
     Dates: start: 2012
  26. VITAMIN D [Concomitant]
     Active Substance: CHOLECALCIFEROL
     Indication: BONE DISORDER
  27. ZANTAC [Concomitant]
     Active Substance: RANITIDINE HYDROCHLORIDE
     Indication: OESOPHAGEAL DISORDER
     Route: 048
     Dates: start: 2006
  28. ZANTAC [Concomitant]
     Active Substance: RANITIDINE HYDROCHLORIDE
     Indication: DYSPEPSIA
     Route: 048
     Dates: start: 2006
  29. TOPROL XL [Suspect]
     Active Substance: METOPROLOL SUCCINATE
     Indication: HEART RATE ABNORMAL
     Route: 048
  30. TOPROL XL [Suspect]
     Active Substance: METOPROLOL SUCCINATE
     Indication: CARDIAC DISORDER
     Route: 048
  31. TOPROL XL [Suspect]
     Active Substance: METOPROLOL SUCCINATE
     Indication: BLOOD PRESSURE SYSTOLIC ABNORMAL
     Route: 048
     Dates: start: 201501, end: 201506
  32. LIPITOR [Suspect]
     Active Substance: ATORVASTATIN CALCIUM
     Route: 065
     Dates: end: 20131115
  33. FUROSEMIDE. [Concomitant]
     Active Substance: FUROSEMIDE
     Indication: FLUID RETENTION
     Route: 048
     Dates: start: 2010
  34. FUROSEMIDE. [Concomitant]
     Active Substance: FUROSEMIDE
     Indication: FLUID RETENTION
     Dosage: DAILY AS NEEDED
     Route: 048
  35. ASPIRIN. [Concomitant]
     Active Substance: ASPIRIN
     Indication: ANTICOAGULANT THERAPY
     Route: 048
  36. VITAMIN D [Concomitant]
     Active Substance: CHOLECALCIFEROL
     Indication: BLOOD CALCIUM ABNORMAL
  37. VITAMIN D [Concomitant]
     Active Substance: CHOLECALCIFEROL
     Indication: BLOOD CALCIUM ABNORMAL
  38. VITAMIN D [Concomitant]
     Active Substance: CHOLECALCIFEROL
     Indication: BONE DISORDER
  39. CRESTOR [Suspect]
     Active Substance: ROSUVASTATIN CALCIUM
     Indication: BLOOD CHOLESTEROL ABNORMAL
     Route: 048
     Dates: start: 20131115
  40. CRESTOR [Suspect]
     Active Substance: ROSUVASTATIN CALCIUM
     Indication: LOW DENSITY LIPOPROTEIN INCREASED
     Route: 048
     Dates: start: 20131115
  41. CRESTOR [Suspect]
     Active Substance: ROSUVASTATIN CALCIUM
     Indication: LOW DENSITY LIPOPROTEIN INCREASED
     Route: 048
  42. CRESTOR [Suspect]
     Active Substance: ROSUVASTATIN CALCIUM
     Indication: BLOOD CHOLESTEROL ABNORMAL
     Dosage: 5 MG FOUR TIMES A WEEK
     Route: 048
     Dates: start: 201410
  43. CRESTOR [Suspect]
     Active Substance: ROSUVASTATIN CALCIUM
     Indication: HYPERLIPIDAEMIA
     Dosage: 5 MG FOUR TIMES A WEEK
     Route: 048
     Dates: start: 201410
  44. TOPROL XL [Suspect]
     Active Substance: METOPROLOL SUCCINATE
     Indication: BLOOD PRESSURE SYSTOLIC ABNORMAL
     Route: 048
     Dates: start: 20130823
  45. TOPROL XL [Suspect]
     Active Substance: METOPROLOL SUCCINATE
     Indication: HYPERTROPHIC CARDIOMYOPATHY
     Route: 048
  46. TOPROL XL [Suspect]
     Active Substance: METOPROLOL SUCCINATE
     Indication: HEART RATE ABNORMAL
     Route: 048
     Dates: start: 201507
  47. TOPROL XL [Suspect]
     Active Substance: METOPROLOL SUCCINATE
     Indication: AORTIC STENOSIS
     Route: 048
     Dates: start: 201507
  48. TOPROL XL [Suspect]
     Active Substance: METOPROLOL SUCCINATE
     Indication: CARDIAC DISORDER
     Route: 048
     Dates: start: 201507
  49. FUROSEMIDE. [Concomitant]
     Active Substance: FUROSEMIDE
     Indication: FLUID RETENTION
     Dosage: 20MG, 4 DAYS PER WEEK
     Route: 048
  50. FUROSEMIDE. [Concomitant]
     Active Substance: FUROSEMIDE
     Indication: OEDEMA PERIPHERAL
     Route: 048
     Dates: start: 2010
  51. FUROSEMIDE. [Concomitant]
     Active Substance: FUROSEMIDE
     Indication: DIURETIC THERAPY
     Dosage: 20 MG , ONE AND ONE HALF TABLET, 3 DAYS PER WEEK
     Route: 048
  52. VITAMIN D [Concomitant]
     Active Substance: CHOLECALCIFEROL
     Indication: BONE DISORDER
     Route: 048
     Dates: start: 2014
  53. TOPROL XL [Suspect]
     Active Substance: METOPROLOL SUCCINATE
     Indication: CARDIAC FAILURE
     Route: 048
     Dates: start: 20130823
  54. TOPROL XL [Suspect]
     Active Substance: METOPROLOL SUCCINATE
     Indication: HEART RATE ABNORMAL
     Route: 048
  55. TOPROL XL [Suspect]
     Active Substance: METOPROLOL SUCCINATE
     Indication: CARDIAC FAILURE
     Route: 048
  56. TOPROL XL [Suspect]
     Active Substance: METOPROLOL SUCCINATE
     Indication: HYPERTROPHIC CARDIOMYOPATHY
     Route: 048
     Dates: start: 201501, end: 201506
  57. TOPROL XL [Suspect]
     Active Substance: METOPROLOL SUCCINATE
     Indication: BLOOD PRESSURE SYSTOLIC ABNORMAL
     Route: 048
     Dates: start: 201507
  58. VERAPAMIL [Concomitant]
     Active Substance: VERAPAMIL HYDROCHLORIDE
     Indication: HYPERTROPHIC CARDIOMYOPATHY
     Route: 048
     Dates: start: 2010
  59. VERAPAMIL [Concomitant]
     Active Substance: VERAPAMIL HYDROCHLORIDE
     Indication: AORTIC STENOSIS
     Route: 048
     Dates: start: 2010
  60. FUROSEMIDE. [Concomitant]
     Active Substance: FUROSEMIDE
     Indication: OEDEMA PERIPHERAL
     Dosage: 20MG, 4 DAYS PER WEEK
     Route: 048
  61. FUROSEMIDE. [Concomitant]
     Active Substance: FUROSEMIDE
     Indication: DIURETIC THERAPY
     Dosage: 20MG, 4 DAYS PER WEEK
     Route: 048
  62. FUROSEMIDE. [Concomitant]
     Active Substance: FUROSEMIDE
     Indication: OEDEMA PERIPHERAL
     Dosage: 20 MG , ONE AND ONE HALF TABLET, 3 DAYS PER WEEK
     Route: 048
  63. FUROSEMIDE. [Concomitant]
     Active Substance: FUROSEMIDE
     Indication: OEDEMA PERIPHERAL
     Route: 048
     Dates: start: 2010
  64. ASPIRIN. [Concomitant]
     Active Substance: ASPIRIN
     Indication: ANTICOAGULANT THERAPY
     Route: 048
     Dates: start: 2010
  65. EVISTA [Concomitant]
     Active Substance: RALOXIFENE HYDROCHLORIDE
     Indication: OSTEOPOROSIS
     Route: 048
     Dates: start: 2006
  66. EVISTA [Concomitant]
     Active Substance: RALOXIFENE HYDROCHLORIDE
     Indication: OSTEOPOROSIS
     Route: 048
     Dates: start: 2010
  67. VITAMIN D [Concomitant]
     Active Substance: CHOLECALCIFEROL
     Indication: BLOOD CALCIUM ABNORMAL
     Route: 048
     Dates: start: 2014
  68. ADVIL [Concomitant]
     Active Substance: IBUPROFEN
     Indication: SPINAL OSTEOARTHRITIS
     Route: 048
     Dates: start: 2015
  69. CRESTOR [Suspect]
     Active Substance: ROSUVASTATIN CALCIUM
     Indication: HYPERLIPIDAEMIA
     Route: 048
     Dates: start: 20131115
  70. TOPROL XL [Suspect]
     Active Substance: METOPROLOL SUCCINATE
     Indication: HEART RATE ABNORMAL
     Route: 048
     Dates: start: 20130823
  71. TOPROL XL [Suspect]
     Active Substance: METOPROLOL SUCCINATE
     Indication: AORTIC STENOSIS
     Route: 048
  72. TOPROL XL [Suspect]
     Active Substance: METOPROLOL SUCCINATE
     Indication: CARDIAC FAILURE
     Route: 048
     Dates: start: 201501, end: 201506
  73. TOPROL XL [Suspect]
     Active Substance: METOPROLOL SUCCINATE
     Indication: HYPERTROPHIC CARDIOMYOPATHY
     Route: 048
     Dates: start: 201507
  74. FUROSEMIDE. [Concomitant]
     Active Substance: FUROSEMIDE
     Indication: DIURETIC THERAPY
     Route: 048
     Dates: start: 2010
  75. CRESTOR [Suspect]
     Active Substance: ROSUVASTATIN CALCIUM
     Indication: HYPERLIPIDAEMIA
     Route: 048
  76. CRESTOR [Suspect]
     Active Substance: ROSUVASTATIN CALCIUM
     Indication: BLOOD CHOLESTEROL ABNORMAL
     Dosage: 5 MG FOUR TIMES A WEEK
     Route: 048
     Dates: start: 201311
  77. CRESTOR [Suspect]
     Active Substance: ROSUVASTATIN CALCIUM
     Indication: HYPERLIPIDAEMIA
     Dosage: 5 MG FOUR TIMES A WEEK
     Route: 048
     Dates: start: 201311
  78. TOPROL XL [Suspect]
     Active Substance: METOPROLOL SUCCINATE
     Indication: AORTIC STENOSIS
     Route: 048
  79. FUROSEMIDE. [Concomitant]
     Active Substance: FUROSEMIDE
     Indication: DIURETIC THERAPY
     Dosage: DAILY AS NEEDED
     Route: 048
  80. ASPIRIN. [Concomitant]
     Active Substance: ASPIRIN
     Indication: ANTICOAGULANT THERAPY
     Dosage: 160 MG, DAILY
     Route: 048
     Dates: start: 2010
  81. VITAMIN D [Concomitant]
     Active Substance: CHOLECALCIFEROL
     Indication: VITAMIN D DEFICIENCY

REACTIONS (43)
  - Chest pain [Unknown]
  - Tracheobronchitis viral [Recovering/Resolving]
  - Memory impairment [Not Recovered/Not Resolved]
  - Pain [Unknown]
  - Arthritis [Not Recovered/Not Resolved]
  - Activities of daily living impaired [Unknown]
  - Throat irritation [Not Recovered/Not Resolved]
  - Blood creatine phosphokinase increased [Unknown]
  - Blood glucose increased [Unknown]
  - Cardiac disorder [Unknown]
  - Peripheral swelling [Not Recovered/Not Resolved]
  - Macular degeneration [Unknown]
  - Fatigue [Not Recovered/Not Resolved]
  - Muscle spasms [Unknown]
  - Intentional product misuse [Unknown]
  - Tearfulness [Unknown]
  - Heart rate increased [Unknown]
  - Productive cough [Not Recovered/Not Resolved]
  - Wheezing [Recovering/Resolving]
  - Dry eye [Unknown]
  - Low density lipoprotein increased [Unknown]
  - Headache [Not Recovered/Not Resolved]
  - Product use issue [Unknown]
  - Myocardial necrosis marker increased [Unknown]
  - Confusional state [Unknown]
  - Neuralgia [Unknown]
  - Asthenia [Unknown]
  - Dyspnoea [Not Recovered/Not Resolved]
  - Tooth disorder [Not Recovered/Not Resolved]
  - Dysphonia [Not Recovered/Not Resolved]
  - Bradycardia [Unknown]
  - Atrial flutter [Unknown]
  - Blood pressure systolic increased [Unknown]
  - Back pain [Not Recovered/Not Resolved]
  - Stress [Not Recovered/Not Resolved]
  - Drug hypersensitivity [Unknown]
  - Off label use [Not Recovered/Not Resolved]
  - Toothache [Unknown]
  - Overweight [Unknown]
  - Malaise [Not Recovered/Not Resolved]
  - Oesophageal pain [Not Recovered/Not Resolved]
  - Feeling abnormal [Not Recovered/Not Resolved]
  - Therapeutic response unexpected [Unknown]

NARRATIVE: CASE EVENT DATE: 2013
